FAERS Safety Report 5501033-4 (Version None)
Quarter: 2007Q4

REPORT INFORMATION
  Report Type: 
  Country: None (occurrence: None)
  Receive Date: 20071029
  Receipt Date: 20071015
  Transmission Date: 20080405
  Serious: Yes (Other)
  Sender: FDA-Public Use
  Company Number: US-SHR-US-2007-008215

PATIENT
  Age: 41 Year
  Sex: Female
  Weight: 77.098 kg

DRUGS (4)
  1. BETASERON [Suspect]
     Indication: RELAPSING-REMITTING MULTIPLE SCLEROSIS
     Dosage: 4 MIU, EVERY 2D
     Route: 058
     Dates: start: 20070215, end: 20070101
  2. BETASERON [Suspect]
     Dosage: 8 MIU, EVERY 2D
     Route: 058
     Dates: start: 20070101
  3. SYNTHROID [Concomitant]
     Indication: FATIGUE
     Dosage: 125 A?G/DAY, UNK
     Route: 048
     Dates: start: 19970101
  4. INDERAL LA [Concomitant]
     Indication: MIGRAINE
     Dosage: 80 MG/D, UNK
     Route: 048
     Dates: start: 20061101

REACTIONS (4)
  - ANXIETY [None]
  - CHEST PAIN [None]
  - INJECTION SITE ERYTHEMA [None]
  - PALPITATIONS [None]
